FAERS Safety Report 19965268 (Version 1)
Quarter: 2021Q4

REPORT INFORMATION
  Report Type: Spontaneous
  Country: PT (occurrence: PT)
  Receive Date: 20211018
  Receipt Date: 20211018
  Transmission Date: 20220304
  Serious: Yes (Hospitalization, Other)
  Sender: FDA-Public Use
  Company Number: PT-MLMSERVICE-20211001-3139085-1

PATIENT
  Age: 67 Year
  Sex: Female

DRUGS (2)
  1. MORPHINE SULFATE [Suspect]
     Active Substance: MORPHINE SULFATE
     Indication: Analgesic therapy
     Dosage: 2.5 MG, UNK
     Route: 008
  2. ROPIVACAINE. [Suspect]
     Active Substance: ROPIVACAINE HYDROCHLORIDE
     Indication: Analgesic therapy
     Dosage: 20 MG, UNK (TOTAL DOSE OF 20 MG)
     Route: 008

REACTIONS (5)
  - Nerve block [Recovered/Resolved]
  - Device dislocation [Recovered/Resolved]
  - Hypercapnia [Unknown]
  - Overdose [Unknown]
  - Somnolence [Unknown]
